FAERS Safety Report 7464516-6 (Version None)
Quarter: 2011Q2

REPORT INFORMATION
  Report Type: 
  Country: None (occurrence: None)
  Receive Date: 20110509
  Receipt Date: 20110426
  Transmission Date: 20111010
  Serious: Yes (Other)
  Sender: FDA-Public Use
  Company Number: JP-JNJFOC-20110500110

PATIENT
  Age: 64 Year
  Sex: Female

DRUGS (5)
  1. DOXIL [Suspect]
     Dosage: PATIENT WAS GIVEN 3 CYCLES
     Route: 042
  2. MUCOSTA [Concomitant]
     Route: 048
  3. DOXIL [Suspect]
     Dosage: PATIENT WAS GIVEN 3 CYCLES
     Route: 042
  4. MAGNESIUM OXIDE [Concomitant]
  5. DOXIL [Suspect]
     Indication: OVARIAN CANCER RECURRENT
     Dosage: PATIENT WAS GIVEN 3 CYCLES
     Route: 042

REACTIONS (1)
  - INTERSTITIAL LUNG DISEASE [None]
